FAERS Safety Report 8205515 (Version 2)
Quarter: 2016Q3

REPORT INFORMATION
  Report Type: Spontaneous
  Country: IE (occurrence: IE)
  Receive Date: 20111028
  Receipt Date: 20160922
  Transmission Date: 20161109
  Serious: Yes (Other)
  Sender: FDA-Public Use
  Company Number: IE-PFIZER INC-2011258663

PATIENT
  Sex: Male

DRUGS (1)
  1. SUTENT [Suspect]
     Active Substance: SUNITINIB MALATE
     Indication: METASTATIC RENAL CELL CARCINOMA
     Dosage: 50 MG, CYCLIC 4/2 SCHEDULE
     Dates: start: 20110905, end: 20111201

REACTIONS (5)
  - Reflux gastritis [Unknown]
  - Palmar-plantar erythrodysaesthesia syndrome [Unknown]
  - Oral candidiasis [Unknown]
  - Mucosal inflammation [Recovering/Resolving]
  - Oesophageal candidiasis [Unknown]
